FAERS Safety Report 16704440 (Version 1)
Quarter: 2019Q3

REPORT INFORMATION
  Report Type: Spontaneous
  Country: US (occurrence: US)
  Receive Date: 20190814
  Receipt Date: 20190814
  Transmission Date: 20191004
  Serious: No
  Sender: FDA-Public Use
  Company Number: US-SA-2019SA217081

PATIENT
  Age: 71 Year
  Sex: Female

DRUGS (1)
  1. PRALUENT [Suspect]
     Active Substance: ALIROCUMAB
     Dosage: 75 MG,QOW

REACTIONS (3)
  - Device malfunction [Unknown]
  - Product dose omission [Unknown]
  - Visual impairment [Unknown]

NARRATIVE: CASE EVENT DATE: 20190805
